FAERS Safety Report 9466881 (Version 3)
Quarter: 2015Q3

REPORT INFORMATION
  Report Type: Report from Study
  Country: US (occurrence: US)
  Receive Date: 20130820
  Receipt Date: 20150930
  Transmission Date: 20151125
  Serious: Yes (Other)
  Sender: FDA-Public Use
  Company Number: US-ROCHE-1262462

PATIENT
  Age: 50 Year
  Sex: Male

DRUGS (8)
  1. LUCENTIS [Suspect]
     Active Substance: RANIBIZUMAB
     Indication: RETINAL VEIN OCCLUSION
     Route: 042
     Dates: start: 20110603, end: 20130407
  2. MYDRIACYL [Concomitant]
     Active Substance: TROPICAMIDE
     Route: 065
  3. LUCENTIS [Suspect]
     Active Substance: RANIBIZUMAB
     Indication: RETINAL OEDEMA
     Route: 050
  4. TETRAVISC [Concomitant]
     Active Substance: TETRACAINE HYDROCHLORIDE
  5. NEO-SYNEPHRINE [Concomitant]
     Active Substance: PHENYLEPHRINE HYDROCHLORIDE
     Route: 065
  6. LUCENTIS [Suspect]
     Active Substance: RANIBIZUMAB
     Indication: CYSTOID MACULAR OEDEMA
  7. LUCENTIS [Suspect]
     Active Substance: RANIBIZUMAB
     Indication: VITREOUS DETACHMENT
  8. BETADINE [Concomitant]
     Active Substance: POVIDONE-IODINE

REACTIONS (5)
  - Pain [Unknown]
  - Photopsia [Recovered/Resolved]
  - Vision blurred [Unknown]
  - Ocular hyperaemia [Unknown]
  - Arthropathy [Unknown]

NARRATIVE: CASE EVENT DATE: 20130110
